FAERS Safety Report 6136809-6 (Version None)
Quarter: 2009Q1

REPORT INFORMATION
  Report Type: 
  Country: None (occurrence: None)
  Receive Date: 20090326
  Receipt Date: 20090326
  Transmission Date: 20090719
  Serious: Yes (Other)
  Sender: FDA-Public Use
  Company Number: None

PATIENT
  Age: 7 Year
  Sex: Female
  Weight: 21 kg

DRUGS (7)
  1. PROTOPIC [Suspect]
     Indication: DERMATITIS ATOPIC
     Dosage: 0.03 %, TOPICAL
     Route: 061
     Dates: start: 20051022
  2. KETOTIFEN FUMARATE [Suspect]
     Indication: DERMATITIS ATOPIC
     Dosage: 6 ML, ORAL 10ML, ORAL
     Route: 048
     Dates: end: 20080404
  3. MYSER (DIFLUPREDNATE) OINTMENT [Concomitant]
  4. BESOFTEN (MUCOPOLYSACCHARIDE POLYSULFURIC ACID ESTER) OINTMENT [Concomitant]
  5. HIRUDOID (HEPARINOID) LOTION [Concomitant]
  6. HIRUDOID (HEPARINOID) CREAM [Concomitant]
  7. PROPETO (WHITE SOFT PARAFFIN) EXTERNAL [Concomitant]

REACTIONS (3)
  - DRUG ADMINISTERED AT INAPPROPRIATE SITE [None]
  - HERPES SIMPLEX [None]
  - KAPOSI'S VARICELLIFORM ERUPTION [None]
